FAERS Safety Report 19907759 (Version 1)
Quarter: 2021Q3

REPORT INFORMATION
  Report Type: Spontaneous
  Country: US (occurrence: US)
  Receive Date: 20210930
  Receipt Date: 20210930
  Transmission Date: 20211014
  Serious: No
  Sender: FDA-Public Use
  Company Number: US-ORGANON-O2109USA002068

PATIENT
  Sex: Female

DRUGS (2)
  1. IPRATROPIUM BROMIDE. [Concomitant]
     Active Substance: IPRATROPIUM BROMIDE
     Dosage: UNK
  2. NASONEX [Suspect]
     Active Substance: MOMETASONE FUROATE
     Dosage: 2 SPRAYS DAILY
     Dates: end: 202109

REACTIONS (6)
  - Drug ineffective [Unknown]
  - Ear pain [Unknown]
  - Product dose omission issue [Unknown]
  - Nasal congestion [Unknown]
  - Illness [Unknown]
  - No adverse event [Unknown]
